FAERS Safety Report 16668329 (Version 2)
Quarter: 2019Q3

REPORT INFORMATION
  Report Type: Spontaneous
  Country: US (occurrence: US)
  Receive Date: 20190805
  Receipt Date: 20190808
  Transmission Date: 20191004
  Serious: Yes (Hospitalization, Other)
  Sender: FDA-Public Use
  Company Number: US-PFIZER INC-2019325872

PATIENT
  Age: 15 Year
  Sex: Male

DRUGS (8)
  1. LORAZEPAM. [Suspect]
     Active Substance: LORAZEPAM
     Dosage: 3 MG, EVERY 4 HRS (DAY 5,LORAZEPAM INCREASED TO 3 MG EVERY 4 HOURS IV SCHEDULED)
     Route: 042
  2. LORAZEPAM. [Suspect]
     Active Substance: LORAZEPAM
     Dosage: UNK (DAY 49 TAPERED OFF LORAZEPAM)
     Route: 048
  3. MELATONIN [Concomitant]
     Active Substance: MELATONIN
     Indication: CATATONIA
     Dosage: 3 MG, 1X/DAY, QHS (EVERY BEDTIME)
  4. LORAZEPAM. [Suspect]
     Active Substance: LORAZEPAM
     Indication: CATATONIA
     Dosage: UNK, AS NEEDED (1-2 MG, (DAY 2)
     Route: 042
  5. LORAZEPAM. [Suspect]
     Active Substance: LORAZEPAM
     Dosage: 3 MG, 4X/DAY (DAY 4,LORAZEPAM INCREASED TO 3 MG EVERY 6 HOURS IV)
     Route: 042
  6. LORAZEPAM. [Suspect]
     Active Substance: LORAZEPAM
     Dosage: 4 MG, EVERY 4 HRS (DAY 9)
     Route: 042
  7. LORAZEPAM. [Suspect]
     Active Substance: LORAZEPAM
     Dosage: 2 MG, 4X/DAY (DAY 3, LORAZEPAM 2 MG SCHEDULED EVERY 6 HOURS)
     Route: 042
  8. LORAZEPAM. [Suspect]
     Active Substance: LORAZEPAM
     Dosage: 4 MG, EVERY 4 HRS (DAY 10, TRANSITIONED)
     Route: 048

REACTIONS (9)
  - Off label use [Unknown]
  - Psychotic disorder [Recovered/Resolved]
  - Confusional state [Recovered/Resolved]
  - Product use in unapproved indication [Unknown]
  - Product use issue [Unknown]
  - Behaviour disorder [Recovered/Resolved]
  - Therapeutic product effect incomplete [Recovered/Resolved]
  - Aggression [Recovered/Resolved]
  - Agitation [Recovered/Resolved]
